FAERS Safety Report 21298244 (Version 1)
Quarter: 2022Q3

REPORT INFORMATION
  Report Type: Spontaneous
  Country: CA (occurrence: CA)
  Receive Date: 20220906
  Receipt Date: 20220906
  Transmission Date: 20221027
  Serious: Yes (Hospitalization)
  Sender: FDA-Public Use
  Company Number: CA-VERTEX PHARMACEUTICALS-2022-012938

PATIENT
  Age: 26 Year
  Sex: Male

DRUGS (1)
  1. TRIKAFTA [Suspect]
     Active Substance: ELEXACAFTOR\IVACAFTOR\TEZACAFTOR
     Indication: Cystic fibrosis
     Dosage: UNK FREQ
     Route: 048
     Dates: start: 202111

REACTIONS (3)
  - Hospitalisation [Unknown]
  - Infective pulmonary exacerbation of cystic fibrosis [Unknown]
  - Major depression [Not Recovered/Not Resolved]

NARRATIVE: CASE EVENT DATE: 20220101
